FAERS Safety Report 20030058 (Version 1)
Quarter: 2021Q4

REPORT INFORMATION
  Report Type: Spontaneous
  Country: JP (occurrence: JP)
  Receive Date: 20211103
  Receipt Date: 20211103
  Transmission Date: 20220303
  Serious: Yes (Other)
  Sender: FDA-Public Use
  Company Number: JP-VALIDUS PHARMACEUTICALS LLC-JP-VDP-2021-014226

PATIENT

DRUGS (1)
  1. LASIX [Suspect]
     Active Substance: FUROSEMIDE
     Indication: Oedema
     Dosage: UNK
     Route: 048

REACTIONS (8)
  - Refeeding syndrome [Recovering/Resolving]
  - Blood phosphorus decreased [Recovering/Resolving]
  - Altered state of consciousness [Recovering/Resolving]
  - Abdominal pain [Recovering/Resolving]
  - Hypernatraemia [Recovering/Resolving]
  - Hypertension [Recovering/Resolving]
  - Tachycardia [Recovering/Resolving]
  - Hypokalaemia [Recovering/Resolving]
